FAERS Safety Report 24834983 (Version 1)
Quarter: 2025Q1

REPORT INFORMATION
  Report Type: Spontaneous
  Country: US (occurrence: US)
  Receive Date: 20250113
  Receipt Date: 20250113
  Transmission Date: 20250409
  Serious: No
  Sender: HIKMA
  Company Number: US-HIKMA PHARMACEUTICALS USA INC.-US-H14001-24-07872

PATIENT

DRUGS (10)
  1. ANTIHISTAMINES NOS [Suspect]
     Active Substance: ANTIHISTAMINES NOS
     Indication: Product used for unknown indication
     Route: 065
  2. CROMOLYN SODIUM [Suspect]
     Active Substance: CROMOLYN SODIUM
     Indication: Product used for unknown indication
     Route: 065
  3. CYCLOSPORINE [Suspect]
     Active Substance: CYCLOSPORINE
     Indication: Product used for unknown indication
     Route: 065
  4. EPHEDRINE [Suspect]
     Active Substance: EPHEDRINE
     Indication: Product used for unknown indication
     Route: 065
  5. KETOTIFEN [Suspect]
     Active Substance: KETOTIFEN
     Indication: Product used for unknown indication
     Route: 065
  6. LUTEOLIN [Suspect]
     Active Substance: LUTEOLIN
     Indication: Product used for unknown indication
     Route: 065
  7. MONTELUKAST [Suspect]
     Active Substance: MONTELUKAST
     Indication: Product used for unknown indication
     Route: 065
  8. UNSPECIFIED INGREDIENT [Suspect]
     Active Substance: UNSPECIFIED INGREDIENT
     Indication: Product used for unknown indication
     Route: 065
  9. PREDNISONE [Suspect]
     Active Substance: PREDNISONE
     Indication: Product used for unknown indication
     Route: 065
  10. SEMAGLUTIDE [Suspect]
     Active Substance: SEMAGLUTIDE
     Indication: Product used for unknown indication
     Route: 065

REACTIONS (1)
  - Drug ineffective [Unknown]
